FAERS Safety Report 17037856 (Version 1)
Quarter: 2019Q4

REPORT INFORMATION
  Report Type: Spontaneous
  Country: NL (occurrence: GB)
  Receive Date: 20191115
  Receipt Date: 20191115
  Transmission Date: 20200122
  Serious: Yes (Hospitalization)
  Sender: FDA-Public Use
  Company Number: GB-FRESENIUS KABI-FK201912539

PATIENT
  Age: 66 Year
  Sex: Female
  Weight: 76 kg

DRUGS (2)
  1. DOCETAXEL (MANUFACTURER UNKNOWN) [Suspect]
     Active Substance: DOCETAXEL
     Indication: SARCOMA UTERUS
     Route: 042
     Dates: start: 20181114, end: 20190118
  2. GEMCITABINE. [Suspect]
     Active Substance: GEMCITABINE
     Indication: SARCOMA UTERUS
     Route: 042
     Dates: start: 20181106, end: 20190118

REACTIONS (1)
  - Neutropenic sepsis [Not Recovered/Not Resolved]

NARRATIVE: CASE EVENT DATE: 20190122
